FAERS Safety Report 13543304 (Version 2)
Quarter: 2017Q2

REPORT INFORMATION
  Report Type: Report from Study
  Country: DE (occurrence: DE)
  Receive Date: 20170514
  Receipt Date: 20170530
  Transmission Date: 20170830
  Serious: Yes (Other)
  Sender: FDA-Public Use
  Company Number: PHHY2017DE066980

PATIENT
  Sex: Female

DRUGS (1)
  1. COSENTYX [Suspect]
     Active Substance: SECUKINUMAB
     Indication: PSORIASIS
     Dosage: 300 MG, PER APPLICATION (150 MG X 2 )
     Route: 058
     Dates: start: 20170424

REACTIONS (2)
  - Breast cancer [Unknown]
  - Stress [Unknown]

NARRATIVE: CASE EVENT DATE: 20170503
